FAERS Safety Report 14542257 (Version 1)
Quarter: 2018Q1

REPORT INFORMATION
  Report Type: Spontaneous
  Country: US (occurrence: US)
  Receive Date: 20180216
  Receipt Date: 20180216
  Transmission Date: 20180509
  Serious: Yes (Other)
  Sender: FDA-Public Use
  Company Number: US-OTSUKA-DJ20113656

PATIENT
  Age: 51 Year
  Sex: Female

DRUGS (10)
  1. EFFEXOR [Suspect]
     Active Substance: VENLAFAXINE HYDROCHLORIDE
     Indication: BIPOLAR DISORDER
  2. ABILIFY [Suspect]
     Active Substance: ARIPIPRAZOLE
     Indication: MOOD SWINGS
     Dosage: 2 MG, UNK
     Route: 048
     Dates: start: 201103
  3. EFFEXOR [Suspect]
     Active Substance: VENLAFAXINE HYDROCHLORIDE
     Indication: DEPRESSION
  4. TRILEPTAL [Concomitant]
     Active Substance: OXCARBAZEPINE
     Indication: GLUTAMATE DEHYDROGENASE INCREASED
     Dosage: UNK
     Route: 065
  5. KLONOPIN [Suspect]
     Active Substance: CLONAZEPAM
     Indication: MANIA
     Dosage: 1 MG, BID
     Route: 048
     Dates: start: 20110603, end: 2011
  6. KLONOPIN [Suspect]
     Active Substance: CLONAZEPAM
     Indication: MUSCLE TIGHTNESS
  7. EFFEXOR [Suspect]
     Active Substance: VENLAFAXINE HYDROCHLORIDE
     Indication: OBSESSIVE-COMPULSIVE DISORDER
     Dosage: TABS,75MG DAILY
     Route: 048
  8. XANAX [Suspect]
     Active Substance: ALPRAZOLAM
     Indication: PRODUCT USED FOR UNKNOWN INDICATION
     Dosage: UNK
     Route: 065
     Dates: end: 2011
  9. SAPHRIS [Suspect]
     Active Substance: ASENAPINE MALEATE
     Indication: MOOD SWINGS
     Dosage: UNK
     Route: 060
     Dates: start: 20110331
  10. KLONOPIN [Suspect]
     Active Substance: CLONAZEPAM
     Indication: ANXIETY DISORDER

REACTIONS (3)
  - Mania [Unknown]
  - Serotonin syndrome [Unknown]
  - Weight increased [Unknown]

NARRATIVE: CASE EVENT DATE: 2011
